FAERS Safety Report 22755067 (Version 3)
Quarter: 2025Q3

REPORT INFORMATION
  Report Type: Report from Study
  Country: KR (occurrence: KR)
  Receive Date: 20230727
  Receipt Date: 20250911
  Transmission Date: 20251021
  Serious: Yes (Hospitalization, Other)
  Sender: TAKEDA
  Company Number: KR-TAKEDA-2023TUS073057

PATIENT
  Age: 26 Year
  Sex: Female
  Weight: 37 kg

DRUGS (152)
  1. VEDOLIZUMAB [Suspect]
     Active Substance: VEDOLIZUMAB
     Indication: Crohn^s disease
     Dates: start: 20230531, end: 20230531
  2. VEDOLIZUMAB [Suspect]
     Active Substance: VEDOLIZUMAB
     Dates: start: 20230614, end: 20230614
  3. VEDOLIZUMAB [Suspect]
     Active Substance: VEDOLIZUMAB
     Dates: start: 20230712, end: 20230712
  4. VEDOLIZUMAB [Suspect]
     Active Substance: VEDOLIZUMAB
     Dates: start: 20230809, end: 20230809
  5. Methimazole bukwang [Concomitant]
     Dosage: 1.25 MILLIGRAM, QOD
     Dates: start: 20221012
  6. Encover [Concomitant]
     Indication: Nutritional supplementation
     Dates: start: 20230614, end: 20230630
  7. Encover [Concomitant]
  8. Flumarin [Concomitant]
     Indication: Adverse event
     Dosage: 1000 MILLIGRAM, QD
     Dates: start: 20230625, end: 20230625
  9. VITAMIN K1 [Concomitant]
     Active Substance: PHYTONADIONE
     Indication: Adverse event
     Dosage: 10 MILLIGRAM, QD
     Dates: start: 20230625, end: 20230625
  10. VITAMIN K1 [Concomitant]
     Active Substance: PHYTONADIONE
  11. VITAMIN K1 [Concomitant]
     Active Substance: PHYTONADIONE
     Dosage: 10 MILLIGRAM, QD
     Dates: start: 20230818
  12. Leclean [Concomitant]
     Dosage: 133 MILLILITER, QD
     Dates: start: 20230626, end: 20230626
  13. Leclean [Concomitant]
     Dosage: 133 MILLILITER, QD
     Dates: start: 20230814
  14. Leclean [Concomitant]
     Dosage: 133 MILLILITER, QD
     Dates: start: 20230815
  15. Acetphen premix [Concomitant]
     Indication: Abdominal pain
     Dosage: 100 MILLILITER, QD
     Dates: start: 20230625, end: 20230625
  16. Acetphen premix [Concomitant]
     Dosage: 100 MILLILITER, QD
     Dates: start: 20230627
  17. Acetphen premix [Concomitant]
     Dosage: 100 MILLILITER, QD
     Dates: start: 20230813
  18. PROPOFOL [Concomitant]
     Active Substance: PROPOFOL
     Indication: Adverse event
     Dosage: 60 MILLIGRAM, QD
     Dates: start: 20230626, end: 20230626
  19. Remiva [Concomitant]
     Indication: Adverse event
     Dosage: 1 MILLIGRAM, QD
     Dates: start: 20230626, end: 20230626
  20. Remiva [Concomitant]
     Dosage: 1 MILLIGRAM, QD
     Dates: start: 20230816
  21. FENTANYL CITRATE [Concomitant]
     Active Substance: FENTANYL CITRATE
     Indication: Adverse event
     Dosage: 20 MILLILITER, QD
     Dates: start: 20230626, end: 20230626
  22. FENTANYL CITRATE [Concomitant]
     Active Substance: FENTANYL CITRATE
     Dosage: 1.2 MILLILITER, QD
     Dates: start: 20230816
  23. RAMOSETRON HYDROCHLORIDE [Concomitant]
     Active Substance: RAMOSETRON HYDROCHLORIDE
     Indication: Adverse event
     Dosage: 0.3 MILLIGRAM, QD
     Dates: start: 20230626, end: 20230626
  24. RAMOSETRON HYDROCHLORIDE [Concomitant]
     Active Substance: RAMOSETRON HYDROCHLORIDE
     Dosage: 0.3 MILLIGRAM, QD
     Dates: start: 20230816
  25. ROCURONIUM BROMIDE [Concomitant]
     Active Substance: ROCURONIUM BROMIDE
     Indication: Adverse event
     Dosage: 5 MILLILITER, QD
     Dates: start: 20230626, end: 20230626
  26. ROCURONIUM BROMIDE [Concomitant]
     Active Substance: ROCURONIUM BROMIDE
     Dosage: 10 MILLILITER, QD
     Dates: start: 20230816
  27. CALCIUM POLYCARBOPHIL [Concomitant]
     Active Substance: CALCIUM POLYCARBOPHIL
     Indication: Adverse event
     Dosage: 1250 MILLIGRAM, TID
     Dates: start: 20230626, end: 20230628
  28. CALCIUM POLYCARBOPHIL [Concomitant]
     Active Substance: CALCIUM POLYCARBOPHIL
     Dosage: 1250 MILLIGRAM, BID
     Dates: start: 20230629, end: 20230721
  29. CALCIUM POLYCARBOPHIL [Concomitant]
     Active Substance: CALCIUM POLYCARBOPHIL
     Dosage: UNK UNK, BID
     Dates: start: 20230726
  30. CALCIUM POLYCARBOPHIL [Concomitant]
     Active Substance: CALCIUM POLYCARBOPHIL
     Dosage: UNK UNK, BID
     Dates: start: 20230804
  31. Flasinyl [Concomitant]
     Indication: Adverse event
     Dosage: 250 MILLIGRAM, TID
     Dates: start: 20230626, end: 20230627
  32. Flasinyl [Concomitant]
     Dosage: 250 MILLIGRAM, BID
     Dates: start: 20230629, end: 20230701
  33. Flasinyl [Concomitant]
     Dosage: 250 MILLIGRAM, QID
     Dates: start: 20230702, end: 20230705
  34. Flasinyl [Concomitant]
  35. Ramnos [Concomitant]
     Indication: Adverse event
     Dosage: 250 MILLIGRAM, TID
     Dates: start: 20230626, end: 20230628
  36. Ramnos [Concomitant]
     Dosage: 250 MILLIGRAM, BID
     Dates: start: 20230629, end: 20230712
  37. Ramnos [Concomitant]
     Dosage: 250 MILLIGRAM, TID
     Dates: start: 20230819
  38. Ramnos [Concomitant]
     Dosage: 250 MILLIGRAM, TID
     Dates: start: 20230824
  39. Ceftriaxone boryung [Concomitant]
     Indication: Adverse event
     Dates: start: 20230628, end: 20230628
  40. Ceftriaxone boryung [Concomitant]
     Dosage: UNK UNK, QD
  41. METOCLOPRAMIDE HYDROCHLORIDE [Concomitant]
     Active Substance: METOCLOPRAMIDE HYDROCHLORIDE
     Indication: Adverse event
     Dosage: 5 MILLIGRAM, QD
     Dates: start: 20230628, end: 20230628
  42. METOCLOPRAMIDE HYDROCHLORIDE [Concomitant]
     Active Substance: METOCLOPRAMIDE HYDROCHLORIDE
     Dates: start: 20230721, end: 20230721
  43. METOCLOPRAMIDE HYDROCHLORIDE [Concomitant]
     Active Substance: METOCLOPRAMIDE HYDROCHLORIDE
     Dates: start: 20230722, end: 20230724
  44. Trisone kit [Concomitant]
     Indication: Adverse event
     Dates: start: 20230629, end: 20230629
  45. Flospan [Concomitant]
     Indication: Abdominal pain
     Dosage: 80 MILLIGRAM, BID
     Dates: start: 20230629, end: 20230630
  46. Flospan [Concomitant]
     Indication: Adverse event
     Dosage: 80 MILLIGRAM, BID
     Dates: start: 20230705, end: 20230721
  47. Flospan [Concomitant]
     Dosage: 160 MILLIGRAM, BID
     Dates: start: 20230807, end: 20230807
  48. Sk albumin [Concomitant]
     Dosage: 100 MILLILITER, QD
     Dates: start: 20230629, end: 20230629
  49. Sk albumin [Concomitant]
     Dosage: 100 MILLILITER, QD
     Dates: start: 20230807, end: 20230807
  50. Citopcin [Concomitant]
     Indication: Adverse event
     Dosage: 200 MILLILITER, BID
     Dates: start: 20230629, end: 20230629
  51. Citopcin [Concomitant]
     Dosage: 500 MILLILITER, BID
     Dates: start: 20230630, end: 20230706
  52. Citopcin [Concomitant]
     Dosage: 400 MILLILITER, BID
     Dates: start: 20230720, end: 20230726
  53. Citopcin [Concomitant]
     Dosage: 500 MILLIGRAM, BID
  54. PINAVERIUM BROMIDE [Concomitant]
     Active Substance: PINAVERIUM BROMIDE
     Indication: Adverse event
     Dosage: 50 MILLIGRAM, TID
     Dates: start: 20230630, end: 20230721
  55. PINAVERIUM BROMIDE [Concomitant]
     Active Substance: PINAVERIUM BROMIDE
     Dosage: 50 MILLIGRAM, TID
     Dates: start: 20230726
  56. Omapone peri [Concomitant]
     Indication: Adverse event
     Dates: start: 20230630, end: 20230630
  57. Omapone peri [Concomitant]
     Dosage: 500 MILLILITER, QD
     Dates: start: 20230805, end: 20230806
  58. Penimadol [Concomitant]
     Indication: Abdominal pain
     Dosage: 0.5 MILLILITER, QD
     Dates: start: 20230630, end: 20230630
  59. Penimadol [Concomitant]
     Indication: Adverse event
     Dosage: 0.5 MILLILITER, QD
     Dates: start: 20230701
  60. Penimadol [Concomitant]
     Dosage: 0.5 MILLILITER, QD
     Dates: start: 20230704, end: 20230704
  61. Penimadol [Concomitant]
     Dates: start: 20230721, end: 20230815
  62. Penimadol [Concomitant]
     Dosage: 1 MILLILITER, QD
     Dates: start: 20230816
  63. Penimadol [Concomitant]
     Dosage: 25 MILLIGRAM, QD
     Dates: start: 20230820
  64. Fotagel [Concomitant]
     Indication: Adverse event
     Dosage: 20 MILLILITER, TID
     Dates: start: 20230703, end: 20230721
  65. Fotagel [Concomitant]
     Dosage: 20 MILLILITER, TID
     Dates: start: 20230725
  66. Fotagel [Concomitant]
     Dosage: 20 MILLILITER, TID
     Dates: start: 20230802
  67. Paceta [Concomitant]
     Indication: Abdominal pain
     Dosage: 5 MILLILITER, QD
     Dates: start: 20230703, end: 20230703
  68. Paceta [Concomitant]
     Indication: Adverse event
     Dosage: 5 MILLILITER, QD
     Dates: start: 20230704, end: 20230704
  69. Paceta [Concomitant]
     Dosage: 5 MILLILITER, QD
     Dates: start: 20230720, end: 20230721
  70. Paceta [Concomitant]
     Dosage: 5 MILLILITER, QD
     Dates: start: 20230730, end: 20230730
  71. Paceta [Concomitant]
     Dosage: 5 MILLILITER, QD
     Dates: start: 20230818
  72. Paceta [Concomitant]
     Dosage: 5 MILLILITER, QD
     Dates: start: 20230821
  73. Mucosta sr [Concomitant]
     Indication: Adverse event
     Dosage: 150 MILLIGRAM, BID
     Dates: start: 20230704, end: 20230721
  74. AMITRIPTYLINE HYDROCHLORIDE [Concomitant]
     Active Substance: AMITRIPTYLINE HYDROCHLORIDE
     Indication: Adverse event
     Dosage: 5 MILLIGRAM, QD
     Dates: start: 20230704, end: 20230712
  75. SODIUM CHLORIDE [Concomitant]
     Active Substance: SODIUM CHLORIDE
     Indication: Premedication
     Dosage: 1000 MILLILITER, QD
     Dates: start: 20230720, end: 20230720
  76. SODIUM CHLORIDE [Concomitant]
     Active Substance: SODIUM CHLORIDE
     Dosage: 100 MILLILITER, QD
     Dates: start: 20230720, end: 20230721
  77. PHENIRAMINE [Concomitant]
     Active Substance: PHENIRAMINE
     Indication: Premedication
     Dosage: 4 MILLIGRAM, QD
     Dates: start: 20230720, end: 20230720
  78. PHENIRAMINE [Concomitant]
     Active Substance: PHENIRAMINE
     Indication: Adverse event
     Dosage: 4 MILLIGRAM, QD
     Dates: start: 20230820
  79. PHENIRAMINE [Concomitant]
     Active Substance: PHENIRAMINE
     Dosage: 4 MILLIGRAMS, QD
     Dates: start: 20230816
  80. ELECTROLYTES NOS\MINERALS [Concomitant]
     Active Substance: ELECTROLYTES NOS\MINERALS
     Indication: Adverse event
     Dosage: 10 MILLILITER, QD
     Dates: start: 20230720, end: 20230720
  81. ELECTROLYTES NOS\MINERALS [Concomitant]
     Active Substance: ELECTROLYTES NOS\MINERALS
     Dosage: 10 MILLILITER, QOD
     Dates: start: 20230818
  82. OLIMEL E [Concomitant]
     Active Substance: AMINO ACIDS\DEXTROSE\ELECTROLYTES NOS\SOYBEAN OIL
     Indication: Adverse event
     Dosage: 1000 MILLILITER, QD
     Dates: start: 20230720, end: 20230721
  83. Albumin gcc [Concomitant]
     Indication: Adverse event
     Dosage: 100 MILLILITER, QD
     Dates: start: 20230721, end: 20230722
  84. Albumin gcc [Concomitant]
     Dosage: 100 MILLIGRAMS
     Dates: start: 20230814
  85. Albumin gcc [Concomitant]
     Dosage: 100 MILLIGRAM, QD
     Dates: start: 20230817
  86. Albumin gcc [Concomitant]
     Dosage: 100 MILLIGRAM, QD
     Dates: start: 20230821
  87. PENTASA [Concomitant]
     Active Substance: MESALAMINE
  88. PENTASA [Concomitant]
     Active Substance: MESALAMINE
     Dosage: 1000 MILLIGRAM, BID
     Dates: start: 20230629
  89. PENTASA [Concomitant]
     Active Substance: MESALAMINE
     Dosage: UNK UNK, QD
     Dates: start: 20230628
  90. PENTASA [Concomitant]
     Active Substance: MESALAMINE
     Dosage: 1000 MILLIGRAM
     Dates: start: 20230629
  91. PENTASA [Concomitant]
     Active Substance: MESALAMINE
     Dosage: 1000 MILLIGRAM, BID
     Dates: start: 20230808
  92. PENTASA [Concomitant]
     Active Substance: MESALAMINE
     Dosage: UNK UNK, QD
     Dates: start: 20230825
  93. METHYLPREDNISOLONE [Concomitant]
     Active Substance: METHYLPREDNISOLONE
     Dosage: 8 MILLIGRAM, BID
     Dates: start: 20230614
  94. METHYLPREDNISOLONE [Concomitant]
     Active Substance: METHYLPREDNISOLONE
     Dosage: 8 MILLIGRAM, BID
     Dates: start: 20230814
  95. METHYLPREDNISOLONE [Concomitant]
     Active Substance: METHYLPREDNISOLONE
     Dosage: 12 MILLIGRAM, QD
     Dates: start: 20230712
  96. METHYLPREDNISOLONE [Concomitant]
     Active Substance: METHYLPREDNISOLONE
     Dosage: 12 MILLIGRAM, QD
     Dates: start: 20230730
  97. METHYLPREDNISOLONE [Concomitant]
     Active Substance: METHYLPREDNISOLONE
     Dosage: 8 MILLIGRAM, QD
     Dates: start: 20230804
  98. Ilyang biocen [Concomitant]
     Dosage: 50 MILLIGRAM, TID
     Dates: start: 20230630, end: 20230721
  99. Ilyang biocen [Concomitant]
     Dosage: 50 MILLIGRAM, TID
     Dates: start: 20230726, end: 20230815
  100. Easyef [Concomitant]
  101. Methysol [Concomitant]
     Indication: Adverse event
     Dosage: 12 MILLIGRAM, QD
     Dates: start: 20230721, end: 20230729
  102. Methysol [Concomitant]
  103. Donga acetaminophen [Concomitant]
     Indication: Adverse event
     Dosage: 20 MILLIGRAM, QD
     Dates: start: 20230721, end: 20230725
  104. Donga acetaminophen [Concomitant]
     Dosage: 20 MILLIGRAM, BID
     Dates: start: 20230816
  105. VITAMINS [Concomitant]
     Active Substance: VITAMINS
     Dates: start: 20230722, end: 20230725
  106. VITAMINS [Concomitant]
     Active Substance: VITAMINS
     Dosage: 5 MILLILITER, QD
     Dates: start: 20230802, end: 20230802
  107. VITAMINS [Concomitant]
     Active Substance: VITAMINS
     Dosage: 5 MILLILITER, QD
     Dates: start: 20230807, end: 20230807
  108. VITAMINS [Concomitant]
     Active Substance: VITAMINS
     Dosage: 5 MILLILITER, QD
     Dates: start: 20230812, end: 20230813
  109. VITAMINS [Concomitant]
     Active Substance: VITAMINS
     Dosage: 5 MILLIGRAM, QD
     Dates: start: 20230815, end: 20230815
  110. Potassium chloride 0.15% + glucose 5% [Concomitant]
     Dates: start: 20230725, end: 20230725
  111. Trestan [Concomitant]
     Indication: Adverse event
     Dates: start: 20230731, end: 20230802
  112. Hidrasec children [Concomitant]
     Indication: Adverse event
     Dosage: 100 MILLIGRAM, TID
     Dates: start: 20230804, end: 20230806
  113. Hidrasec children [Concomitant]
     Dosage: 100 MILLIGRAM, TID
     Dates: start: 20230807, end: 20230807
  114. TYLENOL 8HR [Concomitant]
     Active Substance: ACETAMINOPHEN
     Indication: Adverse event
     Dosage: 650 MILLIGRAM, QD
     Dates: start: 20230806, end: 20230806
  115. TYLENOL 8HR [Concomitant]
     Active Substance: ACETAMINOPHEN
     Dosage: 650 MILLIGRAM, QD
     Dates: start: 20230809, end: 20230809
  116. Cafsol [Concomitant]
     Indication: Adverse event
     Dosage: 500 MILLILITER, QD
     Dates: start: 20230807, end: 20230807
  117. Magnesium sulfate and glucose [Concomitant]
     Dosage: 20 MILLILITER, BID
     Dates: start: 20230807, end: 20230807
  118. Magnesium sulfate and glucose [Concomitant]
     Dosage: 20 MILLIGRAM, QD
     Dates: start: 20230822
  119. PHAZYME [Concomitant]
     Active Substance: DIMETHICONE 410
     Indication: Adverse event
     Dosage: UNK UNK, QD
     Dates: start: 20230809, end: 20230809
  120. AMINO ACIDS\DEXTROSE\ELECTROLYTES NOS\SOYBEAN OIL [Concomitant]
     Active Substance: AMINO ACIDS\DEXTROSE\ELECTROLYTES NOS\SOYBEAN OIL
     Dosage: 986 MILLILITER, QD
     Dates: start: 20230811, end: 20230813
  121. AMINO ACIDS\DEXTROSE\ELECTROLYTES NOS\SOYBEAN OIL [Concomitant]
     Active Substance: AMINO ACIDS\DEXTROSE\ELECTROLYTES NOS\SOYBEAN OIL
     Dosage: 986 MILLILITER, QD
     Dates: start: 20230821
  122. ULTRACET [Concomitant]
     Active Substance: ACETAMINOPHEN\TRAMADOL HYDROCHLORIDE
     Indication: Adverse event
     Dosage: UNK UNK, TID
     Dates: start: 20230811, end: 20230811
  123. PYRIDOXINE HYDROCHLORIDE\THIAMINE HYDROCHLORIDE [Concomitant]
     Active Substance: PYRIDOXINE HYDROCHLORIDE\THIAMINE HYDROCHLORIDE
     Dosage: 100 MILLIGRAM, QD
     Dates: start: 20230812, end: 20230815
  124. Freefol MCT [Concomitant]
     Dosage: 60 MILLIGRAM, QD
     Dates: start: 20230814
  125. Freefol MCT [Concomitant]
     Dosage: 40 MILLIGRAM, QD
     Dates: start: 20230816
  126. AMINO ACIDS, SOURCE UNSPECIFIED [Concomitant]
     Active Substance: AMINO ACIDS, SOURCE UNSPECIFIED
     Indication: Adverse event
     Dosage: 500 MILLILITER, QD
     Dates: start: 20230815, end: 20230815
  127. AMINO ACIDS, SOURCE UNSPECIFIED [Concomitant]
     Active Substance: AMINO ACIDS, SOURCE UNSPECIFIED
     Dosage: 500 MILLILITER, QD
     Dates: start: 20230828
  128. Ildong fluorouracil [Concomitant]
     Indication: Adverse event
  129. Pyrinol P [Concomitant]
     Indication: Adverse event
     Dosage: 10 MILLIGRAM, QD
     Dates: start: 20230816
  130. Palseron [Concomitant]
     Indication: Adverse event
     Dosage: 1.5 MILLILITER, QD
     Dates: start: 20230816
  131. AMBROXOL [Concomitant]
     Active Substance: AMBROXOL
     Indication: Adverse event
     Dosage: 15 MILLIGRAM, TID
     Dates: start: 20230815
  132. ACUPAN [Concomitant]
     Active Substance: NEFOPAM HYDROCHLORIDE
     Indication: Adverse event
     Dosage: 60 MILLIGRAM, BID
     Dates: start: 20230816
  133. BRIDION [Concomitant]
     Active Substance: SUGAMMADEX SODIUM
     Indication: Adverse event
     Dosage: 2 MILLILITER, QD
     Dates: start: 20230816
  134. OXYCODONE HYDROCHLORIDE [Concomitant]
     Active Substance: OXYCODONE HYDROCHLORIDE
     Indication: Adverse event
     Dosage: 60 MILLIGRAM, QD
     Dates: start: 20230816
  135. MEPERIDINE [Concomitant]
     Active Substance: MEPERIDINE
     Indication: Adverse event
     Dosage: 5 MILLIGRAM, QD
  136. MEPERIDINE [Concomitant]
     Active Substance: MEPERIDINE
  137. Freefol [Concomitant]
     Dosage: 80 MILLIGRAM, QD
     Dates: start: 20230817
  138. H-2 [Concomitant]
  139. BATROXOBIN [Concomitant]
     Active Substance: BATROXOBIN
     Indication: Adverse event
     Dosage: 6 MILLILITER, QD
     Dates: start: 20230818
  140. TRANEXAMIC ACID [Concomitant]
     Active Substance: TRANEXAMIC ACID
     Indication: Adverse event
     Dosage: 650 MILLIGRAM, QD
     Dates: start: 20230818
  141. TRANEXAMIC ACID [Concomitant]
     Active Substance: TRANEXAMIC ACID
     Dosage: 650 MILLIGRAM, QD
     Dates: start: 20230820
  142. Dages [Concomitant]
     Indication: Adverse event
     Dosage: UNK UNK, TID
     Dates: start: 20230819
  143. Dages [Concomitant]
  144. SMOFLIPID [Concomitant]
     Active Substance: FISH OIL\MEDIUM-CHAIN TRIGLYCERIDES\OLIVE OIL\SOYBEAN OIL
     Indication: Adverse event
     Dosage: 500 MILLIGRAM, QD
     Dates: start: 20230819
  145. CERNEVIT [Concomitant]
     Active Substance: VITAMINS
     Dosage: 5 MILLILITER, QOD
  146. METRONIDAZOLE [Concomitant]
     Active Substance: METRONIDAZOLE
     Indication: Adverse event
  147. SODIUM CHLORIDE [Concomitant]
     Active Substance: SODIUM CHLORIDE
     Dosage: 20 MILLILITER, QD
     Dates: start: 20230818
  148. ChoongWae NS [Concomitant]
     Indication: Adverse event
     Dosage: 20 MILLILITER, QD
     Dates: start: 20230820
  149. Freepan [Concomitant]
     Indication: Adverse event
  150. AMINOPHENAZONE [Concomitant]
     Active Substance: AMINOPHENAZONE
     Indication: Adverse event
     Dosage: 500 MILLIGRAM, QD
     Dates: start: 20230821
  151. Tazolactam [Concomitant]
     Indication: Adverse event
  152. CALCIUM CHLORIDE [Concomitant]
     Active Substance: CALCIUM CHLORIDE
     Dosage: 20 MILLILITER, QD
     Dates: start: 20230822

REACTIONS (1)
  - Crohn^s disease [Recovered/Resolved]

NARRATIVE: CASE EVENT DATE: 20230718
